FAERS Safety Report 9382894 (Version 1)
Quarter: 2013Q3

REPORT INFORMATION
  Report Type: Spontaneous
  Country: FR (occurrence: FR)
  Receive Date: 20130703
  Receipt Date: 20130703
  Transmission Date: 20140515
  Serious: Yes (Life-Threatening, Hospitalization, Other)
  Sender: FDA-Public Use
  Company Number: FR-BAXTER-2013BAX024380

PATIENT
  Age: 51 Year
  Sex: Male

DRUGS (15)
  1. SEVOFLURANE BAXTER 1 ML/ML, LIQUIDE POUR INHALATION PAR VAPEUR [Suspect]
     Indication: MAINTENANCE OF ANAESTHESIA
     Route: 055
     Dates: start: 20130131, end: 20130131
  2. NORADRENALINE [Suspect]
     Indication: PRODUCT USED FOR UNKNOWN INDICATION
     Route: 042
     Dates: start: 20130131, end: 20130131
  3. HEPARINE SODIQUE [Suspect]
     Indication: PRODUCT USED FOR UNKNOWN INDICATION
     Route: 042
     Dates: start: 20130131, end: 20130131
  4. HEPARINE SODIQUE [Suspect]
     Indication: MAINTENANCE OF ANAESTHESIA
  5. SUFENTANIL [Suspect]
     Indication: INDUCTION OF ANAESTHESIA
     Route: 042
     Dates: start: 20130131, end: 20130131
  6. SUFENTANIL [Suspect]
     Indication: MAINTENANCE OF ANAESTHESIA
  7. HYPNOMIDATE [Suspect]
     Indication: INDUCTION OF ANAESTHESIA
     Route: 042
     Dates: start: 20130131
  8. HYPNOMIDATE [Suspect]
     Indication: MAINTENANCE OF ANAESTHESIA
  9. NIMBEX [Suspect]
     Indication: INDUCTION OF ANAESTHESIA
     Route: 042
     Dates: start: 20130131
  10. NIMBEX [Suspect]
     Indication: MAINTENANCE OF ANAESTHESIA
  11. PROTAMINE [Suspect]
     Indication: HEPARIN NEUTRALISATION THERAPY
     Route: 042
     Dates: start: 20130131, end: 20130131
  12. CEFAMANDOLE [Suspect]
     Indication: PRODUCT USED FOR UNKNOWN INDICATION
     Route: 042
     Dates: start: 20130131, end: 20130131
  13. SODIUM CHLORIDE [Concomitant]
     Indication: PRODUCT USED FOR UNKNOWN INDICATION
     Route: 065
  14. RINGER [Concomitant]
     Indication: PRODUCT USED FOR UNKNOWN INDICATION
     Route: 065
  15. VOLUVEN [Concomitant]
     Indication: PRODUCT USED FOR UNKNOWN INDICATION
     Route: 065

REACTIONS (12)
  - Intestinal ischaemia [Recovered/Resolved with Sequelae]
  - Abdominal pain [Unknown]
  - Metabolic acidosis [Unknown]
  - Ileus [Unknown]
  - Transaminases increased [Unknown]
  - Pneumonia [Unknown]
  - Sepsis [Unknown]
  - Cardiac arrest [Unknown]
  - Multi-organ failure [Unknown]
  - Septic shock [Unknown]
  - Aspartate aminotransferase increased [None]
  - Alanine aminotransferase increased [None]
